FAERS Safety Report 8829233 (Version 9)
Quarter: 2020Q1

REPORT INFORMATION
  Report Type: Spontaneous
  Country: DE (occurrence: DE)
  Receive Date: 20121008
  Receipt Date: 20200318
  Transmission Date: 20200409
  Serious: Yes (Other)
  Sender: FDA-Public Use
  Company Number: PHHY2012DE085061

PATIENT
  Age: 80 Year
  Sex: Male

DRUGS (7)
  1. EVEROLIMUS. [Concomitant]
     Active Substance: EVEROLIMUS
     Indication: PRODUCT USED FOR UNKNOWN INDICATION
     Dosage: 2 MG, QD
     Route: 065
  2. PREDNISOLONE. [Suspect]
     Active Substance: PREDNISOLONE
     Dosage: 1 MG, QD
     Route: 065
  3. PREDNISOLONE. [Suspect]
     Active Substance: PREDNISOLONE
     Indication: MYASTHENIA GRAVIS
     Dosage: 5 MG, 1D (DAILY DOSE: 5 MG MILLIGRAM(S) EVERY DAY)
     Route: 065
  4. EVEROLIMUS. [Concomitant]
     Active Substance: EVEROLIMUS
     Dosage: 0.5 MG AT MORNING, 0.25 MG AT NIGHT
     Route: 065
  5. HYDROCORTISONE. [Suspect]
     Active Substance: HYDROCORTISONE
     Indication: KAPOSI^S SARCOMA
     Route: 065
  6. EVEROLIMUS. [Concomitant]
     Active Substance: EVEROLIMUS
     Dosage: 0.5 MG, BID
     Route: 065
  7. AZATHIOPRINE. [Suspect]
     Active Substance: AZATHIOPRINE
     Indication: MYASTHENIA GRAVIS
     Dosage: 40 MG, QD
     Route: 065

REACTIONS (10)
  - Macule [Recovering/Resolving]
  - Renal failure [Unknown]
  - Human herpesvirus 8 infection [Unknown]
  - Immunosuppression [Unknown]
  - Kaposi^s sarcoma [Recovering/Resolving]
  - Antiacetylcholine receptor antibody positive [Recovering/Resolving]
  - Skin lesion [Recovering/Resolving]
  - Skin mass [Recovering/Resolving]
  - Skin disorder [Unknown]
  - Drug ineffective for unapproved indication [Unknown]
